FAERS Safety Report 11965089 (Version 1)
Quarter: 2016Q1

REPORT INFORMATION
  Report Type: Spontaneous
  Country: US (occurrence: None)
  Receive Date: 20160125
  Receipt Date: 20160125
  Transmission Date: 20160526
  Serious: Yes (Hospitalization)
  Sender: FDA-Public Use
  Company Number: None

PATIENT
  Age: 24 Year
  Sex: Male
  Weight: 80.74 kg

DRUGS (5)
  1. ZENZEDI [Concomitant]
     Active Substance: DEXTROAMPHETAMINE SULFATE
  2. LEXAPRO [Concomitant]
     Active Substance: ESCITALOPRAM OXALATE
  3. CLONAZEPAM 1 MG [TOOK .5 MG] QUALITEST [Suspect]
     Active Substance: CLONAZEPAM
     Indication: PERIODIC LIMB MOVEMENT DISORDER
     Dosage: 1 PILL, AT BEDTIME, TAKEN BY MOUTH
     Dates: start: 20150917, end: 20160115
  4. AMBIEN CR [Concomitant]
     Active Substance: ZOLPIDEM TARTRATE
  5. OMEGA-3 ACIDS [Concomitant]
     Active Substance: OMEGA-3 FATTY ACIDS

REACTIONS (9)
  - Affective disorder [None]
  - Apathy [None]
  - Crying [None]
  - Withdrawal syndrome [None]
  - Hot flush [None]
  - Irritability [None]
  - Emotional disorder [None]
  - Asocial behaviour [None]
  - Tremor [None]

NARRATIVE: CASE EVENT DATE: 20151212
